FAERS Safety Report 20813316 (Version 1)
Quarter: 2022Q2

REPORT INFORMATION
  Report Type: Spontaneous
  Country: US (occurrence: None)
  Receive Date: 20220510
  Receipt Date: 20220510
  Transmission Date: 20220721
  Serious: No
  Sender: FDA-Public Use
  Company Number: None

PATIENT
  Sex: Female

DRUGS (3)
  1. HUMIRA [Suspect]
     Active Substance: ADALIMUMAB
     Indication: Rheumatoid arthritis
     Dosage: OTHER FREQUENCY : EVERY 14 DAYS;?
     Route: 058
     Dates: start: 202202
  2. HYDROXCHLOQUIQNE 300MG PER DAY [Concomitant]
  3. LARIN 24 FE 1 TABLET DAILY [Concomitant]

REACTIONS (1)
  - Psoriasis [None]

NARRATIVE: CASE EVENT DATE: 20220401
